FAERS Safety Report 15410779 (Version 1)
Quarter: 2018Q3

REPORT INFORMATION
  Report Type: Spontaneous
  Country: US (occurrence: US)
  Receive Date: 20180919
  Receipt Date: 20180919
  Transmission Date: 20181010
  Serious: Yes (Hospitalization)
  Sender: FDA-Public Use
  Company Number: None

PATIENT
  Age: 84 Year
  Sex: Male
  Weight: 67.7 kg

DRUGS (10)
  1. APIXABAN [Suspect]
     Active Substance: APIXABAN
     Indication: ATRIAL FIBRILLATION
     Route: 048
     Dates: start: 20171226, end: 20180626
  2. EPOGEN [Concomitant]
     Active Substance: ERYTHROPOIETIN
  3. FE SULFATE [Concomitant]
  4. FUROSEMIDE. [Concomitant]
     Active Substance: FUROSEMIDE
  5. METOPROLOL. [Concomitant]
     Active Substance: METOPROLOL
  6. INSULIN ASPART [Concomitant]
     Active Substance: INSULIN ASPART
  7. ALLOPURINOL. [Concomitant]
     Active Substance: ALLOPURINOL
  8. HYDRALAZINE [Concomitant]
     Active Substance: HYDRALAZINE HYDROCHLORIDE
  9. FAMOTIDINE. [Concomitant]
     Active Substance: FAMOTIDINE
  10. PREDNISONE. [Concomitant]
     Active Substance: PREDNISONE

REACTIONS (1)
  - Epistaxis [None]

NARRATIVE: CASE EVENT DATE: 20180626
